FAERS Safety Report 25429067 (Version 1)
Quarter: 2025Q2

REPORT INFORMATION
  Report Type: Report from Study
  Country: US (occurrence: US)
  Receive Date: 20250612
  Receipt Date: 20250612
  Transmission Date: 20250716
  Serious: Yes (Hospitalization)
  Sender: EISAI
  Company Number: US-Eisai-EC-2025-190760

PATIENT
  Age: 66 Year
  Sex: Male

DRUGS (14)
  1. LENVIMA [Suspect]
     Active Substance: LENVATINIB
     Indication: Renal cancer
     Dates: start: 20220924, end: 202210
  2. LENVIMA [Suspect]
     Active Substance: LENVATINIB
     Dates: start: 20230510
  3. LENVIMA [Suspect]
     Active Substance: LENVATINIB
     Dates: start: 2024, end: 2024
  4. LENVIMA [Suspect]
     Active Substance: LENVATINIB
     Dates: start: 2024, end: 2024
  5. LENVIMA [Suspect]
     Active Substance: LENVATINIB
     Dates: end: 2025
  6. LENVIMA [Suspect]
     Active Substance: LENVATINIB
     Dates: start: 2025, end: 2025
  7. LENVIMA [Suspect]
     Active Substance: LENVATINIB
     Dates: start: 2025, end: 202505
  8. LENVIMA [Suspect]
     Active Substance: LENVATINIB
     Dates: start: 202210, end: 2023
  9. KEYTRUDA [Concomitant]
     Active Substance: PEMBROLIZUMAB
     Indication: Product used for unknown indication
  10. KEYTRUDA [Concomitant]
     Active Substance: PEMBROLIZUMAB
  11. LEVOTHYROXINE [Concomitant]
     Active Substance: LEVOTHYROXINE
  12. IMODIUM [Concomitant]
     Active Substance: LOPERAMIDE HYDROCHLORIDE
  13. LOMOTIL [Concomitant]
     Active Substance: ATROPINE SULFATE\DIPHENOXYLATE HYDROCHLORIDE
  14. WARFARIN [Concomitant]
     Active Substance: WARFARIN

REACTIONS (3)
  - Diarrhoea [Unknown]
  - Vomiting [Unknown]
  - Dehydration [Unknown]

NARRATIVE: CASE EVENT DATE: 20250604
